FAERS Safety Report 4896353-0 (Version None)
Quarter: 2006Q1

REPORT INFORMATION
  Report Type: 
  Country: None (occurrence: None)
  Receive Date: 20060126
  Receipt Date: 20060111
  Transmission Date: 20060701
  Serious: Yes (Death, Hospitalization)
  Sender: FDA-Public Use
  Company Number: 200601IM000058

PATIENT
  Age: 63 Year
  Sex: Male
  Weight: 65 kg

DRUGS (3)
  1. IMMUKIN (INTERFERON GAMMA-1B) [Suspect]
     Indication: CYSTIC FIBROSIS
     Dosage: 100 UG; QD; SUBCUTANEOUS
     Route: 058
  2. CALCIUM GLUCONATE [Concomitant]
  3. STEROID [Concomitant]

REACTIONS (1)
  - PNEUMONIA [None]
